FAERS Safety Report 5195901-3 (Version None)
Quarter: 2007Q1

REPORT INFORMATION
  Report Type: 
  Country: None (occurrence: None)
  Receive Date: 20070102
  Receipt Date: 20061227
  Transmission Date: 20070707
  Serious: Yes (Death, Hospitalization)
  Sender: FDA-Public Use
  Company Number: NL-SANOFI-SYNTHELABO-F01200602517

PATIENT
  Sex: Male
  Weight: 73 kg

DRUGS (6)
  1. ACETAMINOPHEN [Concomitant]
     Dosage: UNK
  2. BEVACIZUMAB [Suspect]
     Dosage: 548 MG
     Route: 041
     Dates: start: 20061130, end: 20061130
  3. CAPECITABINE [Suspect]
     Route: 048
     Dates: start: 20061130, end: 20061130
  4. OXALIPLATIN [Suspect]
     Indication: COLORECTAL CANCER
     Dosage: 240 MG
     Route: 041
     Dates: start: 20061130, end: 20061130
  5. OMEPRAZOLE [Concomitant]
  6. OXAZEPAM [Concomitant]

REACTIONS (6)
  - AORTIC ANEURYSM [None]
  - CONSTIPATION [None]
  - GENERAL PHYSICAL HEALTH DETERIORATION [None]
  - HAEMOGLOBIN DECREASED [None]
  - HAEMORRHAGE [None]
  - SHOCK [None]
